FAERS Safety Report 4459546-2 (Version None)
Quarter: 2004Q3

REPORT INFORMATION
  Report Type: 
  Country: None (occurrence: None)
  Receive Date: 20040910
  Receipt Date: 20040721
  Transmission Date: 20050211
  Serious: No
  Sender: FDA-Public Use
  Company Number: 2004214290US

PATIENT
  Age: 55 Year
  Sex: Female
  Weight: 72.6 kg

DRUGS (5)
  1. BEXTRA [Suspect]
     Indication: POST PROCEDURAL PAIN
     Dosage: 10 MG, QD,
     Dates: start: 20040510, end: 20040524
  2. LOPID [Concomitant]
  3. LIPITOR [Concomitant]
  4. INDERAL [Concomitant]
  5. NORTRIPTYLINE HCL [Concomitant]

REACTIONS (4)
  - ABDOMINAL DISTENSION [None]
  - DIARRHOEA [None]
  - DYSPEPSIA [None]
  - INTESTINAL FUNCTIONAL DISORDER [None]
